FAERS Safety Report 25654771 (Version 1)
Quarter: 2025Q3

REPORT INFORMATION
  Report Type: Spontaneous
  Country: IN (occurrence: IN)
  Receive Date: 20250807
  Receipt Date: 20250807
  Transmission Date: 20251021
  Serious: Yes (Death, Hospitalization, Other)
  Sender: RANBAXY
  Company Number: IN-SUN PHARMACEUTICAL INDUSTRIES LTD-2025R1-521222

PATIENT
  Age: 24 Year
  Sex: Female

DRUGS (1)
  1. FERROUS SULFATE [Suspect]
     Active Substance: FERROUS SULFATE
     Indication: Product used for unknown indication
     Route: 048

REACTIONS (11)
  - Cardiac failure [Fatal]
  - Metabolic acidosis [Fatal]
  - Multiple organ dysfunction syndrome [Fatal]
  - Mucosal haemorrhage [Unknown]
  - Overdose [Fatal]
  - Shock [Fatal]
  - Toxicity to various agents [Fatal]
  - Coagulopathy [Unknown]
  - Hypotension [Unknown]
  - Liver injury [Unknown]
  - Renal function test abnormal [Unknown]
